FAERS Safety Report 16790205 (Version 4)
Quarter: 2019Q4

REPORT INFORMATION
  Report Type: Report from Study
  Country: JP (occurrence: JP)
  Receive Date: 20190910
  Receipt Date: 20191210
  Transmission Date: 20200122
  Serious: Yes (Death, Life-Threatening, Hospitalization, Other)
  Sender: FDA-Public Use
  Company Number: JP-009507513-1908JPN001768J

PATIENT
  Age: 68 Year
  Sex: Male
  Weight: 59 kg

DRUGS (8)
  1. NOVAMIN [Concomitant]
     Indication: BILE DUCT CANCER
     Dosage: 5 MILLIGRAM, TID
     Route: 048
     Dates: end: 20190731
  2. SPIRONOLACTONE. [Concomitant]
     Active Substance: SPIRONOLACTONE
     Indication: BILE DUCT CANCER
     Dosage: 25 MILLIGRAM, QD
     Route: 048
     Dates: end: 20190731
  3. LANSOPRAZOLE. [Concomitant]
     Active Substance: LANSOPRAZOLE
     Indication: BILE DUCT CANCER
     Dosage: 30 MILLIGRAM, QD
     Route: 048
     Dates: end: 20190731
  4. KEYTRUDA [Suspect]
     Active Substance: PEMBROLIZUMAB
     Indication: BILE DUCT CANCER
     Dosage: 200 MILLIGRAM, Q3W
     Route: 041
     Dates: start: 20190515, end: 20190626
  5. URSODEOXYCHOLIC ACID [Concomitant]
     Active Substance: URSODIOL
     Indication: BILE DUCT CANCER
     Dosage: 200 MILLIGRAM, TID
     Route: 048
     Dates: end: 20190731
  6. CALONAL [Concomitant]
     Active Substance: ACETAMINOPHEN
     Indication: BILE DUCT CANCER
     Dosage: 500 MILLIGRAM, QID
     Route: 048
     Dates: end: 20190731
  7. LIVACT [Concomitant]
     Active Substance: AMINO ACIDS, SOURCE UNSPECIFIED
     Indication: BILE DUCT CANCER
     Dosage: 4.15 GRAMS, TID
     Route: 048
     Dates: end: 20190731
  8. HARNAL [Concomitant]
     Active Substance: TAMSULOSIN HYDROCHLORIDE
     Indication: BILE DUCT CANCER
     Dosage: 0.2 MILLIGRAM, QD
     Route: 048
     Dates: end: 20190731

REACTIONS (3)
  - Malignant neoplasm progression [Fatal]
  - Enteritis infectious [Unknown]
  - Diarrhoea [Recovered/Resolved]

NARRATIVE: CASE EVENT DATE: 20190703
